FAERS Safety Report 12629398 (Version 1)
Quarter: 2016Q3

REPORT INFORMATION
  Report Type: Spontaneous
  Country: US (occurrence: US)
  Receive Date: 20160808
  Receipt Date: 20160808
  Transmission Date: 20161109
  Serious: No
  Sender: FDA-Public Use
  Company Number: US-BAUSCH-BL-2016-012009

PATIENT
  Age: 16 Year
  Sex: Female

DRUGS (3)
  1. RUCONEST [Suspect]
     Active Substance: HUMAN C1-ESTERASE INHIBITOR
     Dosage: TOOK SECOND DOSE AT AN INTERVAL OF 12 HOURS FROM FIRST DOSE
     Route: 065
     Dates: start: 20160506, end: 20160506
  2. RUCONEST [Suspect]
     Active Substance: HUMAN C1-ESTERASE INHIBITOR
     Dosage: FIRST DOSE
     Route: 065
     Dates: start: 20160505, end: 20160505
  3. RUCONEST [Suspect]
     Active Substance: HUMAN C1-ESTERASE INHIBITOR
     Indication: HEREDITARY ANGIOEDEMA
     Route: 065
     Dates: start: 20160406, end: 20160406

REACTIONS (3)
  - Pain [Not Recovered/Not Resolved]
  - Pharyngeal oedema [Unknown]
  - Vomiting [Unknown]

NARRATIVE: CASE EVENT DATE: 20160505
